FAERS Safety Report 16136590 (Version 3)
Quarter: 2024Q1

REPORT INFORMATION
  Report Type: Spontaneous
  Country: BR (occurrence: BR)
  Receive Date: 20190329
  Receipt Date: 20240131
  Transmission Date: 20240409
  Serious: Yes (Other)
  Sender: FDA-Public Use
  Company Number: BR-BIOMARINAP-BR-2019-122742

PATIENT

DRUGS (1)
  1. NAGLAZYME [Suspect]
     Active Substance: GALSULFASE
     Indication: Mucopolysaccharidosis VI
     Dosage: UNK UNK, QW
     Route: 042
     Dates: start: 20070912

REACTIONS (7)
  - Spinal cord compression [Not Recovered/Not Resolved]
  - Blindness [Not Recovered/Not Resolved]
  - Deafness bilateral [Unknown]
  - Cervical spinal stenosis [Not Recovered/Not Resolved]
  - Medullary compression syndrome [Not Recovered/Not Resolved]
  - Congenital musculoskeletal disorder of spine [Not Recovered/Not Resolved]
  - Scoliosis [Not Recovered/Not Resolved]

NARRATIVE: CASE EVENT DATE: 20100101
